FAERS Safety Report 8363474-X (Version None)
Quarter: 2012Q2

REPORT INFORMATION
  Report Type: 
  Country: None (occurrence: None)
  Receive Date: 20120516
  Receipt Date: 20120507
  Transmission Date: 20120825
  Serious: No
  Sender: FDA-Public Use
  Company Number: US-ROXANE LABORATORIES, INC.-2012-RO-01046RO

PATIENT
  Sex: Female

DRUGS (1)
  1. FLUTICASONE FUROATE [Suspect]
     Indication: MULTIPLE ALLERGIES
     Route: 045

REACTIONS (1)
  - DRUG INEFFECTIVE [None]
